FAERS Safety Report 12924747 (Version 12)
Quarter: 2017Q4

REPORT INFORMATION
  Report Type: Report from Study
  Country: DE (occurrence: DE)
  Receive Date: 20161109
  Receipt Date: 20171122
  Transmission Date: 20180320
  Serious: Yes (Hospitalization, Other)
  Sender: FDA-Public Use
  Company Number: PHHY2016DE150076

PATIENT
  Age: 42 Year
  Sex: Female
  Weight: 73.5 kg

DRUGS (4)
  1. SIGNIFOR [Suspect]
     Active Substance: PASIREOTIDE
     Indication: PITUITARY-DEPENDENT CUSHING^S SYNDROME
     Dosage: 0.6 MG, BID
     Route: 058
     Dates: start: 20130301, end: 20130821
  2. MIRENA [Concomitant]
     Active Substance: LEVONORGESTREL
     Indication: CONTRACEPTION
     Dosage: UNK
     Route: 065
     Dates: start: 20080306
  3. DEKRISTOL [Concomitant]
     Active Substance: CHOLECALCIFEROL
     Indication: VITAMIN D DEFICIENCY
     Dosage: 2000 OT, QW
     Route: 048
     Dates: start: 20100907
  4. SIGNIFOR [Suspect]
     Active Substance: PASIREOTIDE
     Dosage: 0.6 MG, BID
     Route: 058
     Dates: start: 20130822, end: 20160829

REACTIONS (13)
  - Drug intolerance [Not Recovered/Not Resolved]
  - Hepatic enzyme increased [Recovered/Resolved]
  - Cholelithiasis [Recovered/Resolved]
  - Diarrhoea [Recovered/Resolved]
  - Abdominal pain [Recovered/Resolved]
  - Biliary tract disorder [Unknown]
  - Drug ineffective [Unknown]
  - Cholangitis [Recovering/Resolving]
  - Peristalsis visible [Recovered/Resolved]
  - Cholangitis [Recovered/Resolved]
  - Post procedural complication [Recovering/Resolving]
  - Diarrhoea [Recovered/Resolved]
  - Abdominal discomfort [Recovering/Resolving]

NARRATIVE: CASE EVENT DATE: 20130822
